FAERS Safety Report 25094159 (Version 2)
Quarter: 2025Q2

REPORT INFORMATION
  Report Type: Spontaneous
  Country: US (occurrence: US)
  Receive Date: 20250319
  Receipt Date: 20250415
  Transmission Date: 20250716
  Serious: No
  Sender: ALKERMES
  Company Number: US-ALKERMES INC.-ALK-2025-000658

PATIENT
  Sex: Female

DRUGS (2)
  1. VIVITROL [Suspect]
     Active Substance: NALTREXONE
     Indication: Alcohol use disorder
     Route: 030
     Dates: start: 201901
  2. HUMIRA [Concomitant]
     Active Substance: ADALIMUMAB
     Indication: Skin disorder
     Route: 065

REACTIONS (4)
  - Treatment noncompliance [Unknown]
  - Skin burning sensation [Recovering/Resolving]
  - Rash [Unknown]
  - Pruritus [Unknown]

NARRATIVE: CASE EVENT DATE: 20190101
